FAERS Safety Report 9394851 (Version 2)
Quarter: 2013Q3

REPORT INFORMATION
  Report Type: Report from Study
  Country: TH (occurrence: TH)
  Receive Date: 20130711
  Receipt Date: 20130718
  Transmission Date: 20140515
  Serious: Yes (Other)
  Sender: FDA-Public Use
  Company Number: TH-EISAI INC-E7389-03820-CLI-TH

PATIENT
  Age: 74 Year
  Sex: Female
  Weight: 58 kg

DRUGS (9)
  1. E7389 (BOLD) [Suspect]
     Indication: SOFT TISSUE NEOPLASM
     Route: 041
     Dates: start: 20130128, end: 20130128
  2. E7389 (BOLD) [Suspect]
     Route: 041
     Dates: start: 20130211
  3. SENOKOT [Concomitant]
     Indication: CONSTIPATION
     Route: 048
     Dates: start: 20101111
  4. LORAZEPAM [Concomitant]
     Indication: INSOMNIA
     Route: 048
     Dates: start: 20130111
  5. TRAMADOL [Concomitant]
     Indication: PELVIC PAIN
     Route: 048
     Dates: start: 20130111
  6. BISACODYL [Concomitant]
     Indication: CONSTIPATION
     Route: 048
     Dates: start: 20130111
  7. MILK OF MAGNESIA [Concomitant]
     Indication: CONSTIPATION
     Route: 048
     Dates: start: 20101222
  8. AMLODIPINE [Concomitant]
     Indication: HYPERTENSION
     Route: 048
     Dates: start: 20130211
  9. TEARS NATURAL [Concomitant]
     Indication: DRY EYE
     Route: 061
     Dates: start: 20130111

REACTIONS (1)
  - Hyponatraemia [Recovered/Resolved]
